FAERS Safety Report 5054349-2 (Version None)
Quarter: 2006Q2

REPORT INFORMATION
  Report Type: 
  Country: None (occurrence: None)
  Receive Date: 20060616
  Receipt Date: 20060501
  Transmission Date: 20061013
  Serious: No
  Sender: FDA-Public Use
  Company Number: 224563

PATIENT
  Age: 47 Year
  Sex: Male

DRUGS (3)
  1. AVASTIN [Suspect]
     Indication: COLORECTAL CANCER METASTATIC
     Dosage: Q2W
     Dates: start: 20051001
  2. LEUCOVORIN (LEUCOVORIN) [Concomitant]
  3. FLUOROURACIL [Concomitant]

REACTIONS (2)
  - ASTHENIA [None]
  - BLOOD GLUCOSE INCREASED [None]
